FAERS Safety Report 6638333-0 (Version None)
Quarter: 2010Q1

REPORT INFORMATION
  Report Type: 
  Country: None (occurrence: None)
  Receive Date: 20100317
  Receipt Date: 20100222
  Transmission Date: 20100710
  Serious: Yes (Other)
  Sender: FDA-Public Use
  Company Number: DE-BAYER-200937194GPV

PATIENT
  Age: 42 Year
  Sex: Male
  Weight: 79 kg

DRUGS (1)
  1. ALEVE (CAPLET) [Suspect]
     Indication: ARTHRALGIA
     Dosage: TOOK 2 TABLETS
     Route: 048
     Dates: start: 20091022, end: 20091024

REACTIONS (8)
  - COORDINATION ABNORMAL [None]
  - DIZZINESS [None]
  - DYSARTHRIA [None]
  - FATIGUE [None]
  - FEELING DRUNK [None]
  - MUSCULAR WEAKNESS [None]
  - SOMNOLENCE [None]
  - TREMOR [None]
